FAERS Safety Report 18420075 (Version 2)
Quarter: 2020Q4

REPORT INFORMATION
  Report Type: Spontaneous
  Country: ES (occurrence: ES)
  Receive Date: 20201023
  Receipt Date: 20201221
  Transmission Date: 20210114
  Serious: Yes (Life-Threatening, Hospitalization, Other)
  Sender: FDA-Public Use
  Company Number: ES-LUPIN PHARMACEUTICALS INC.-2020-07679

PATIENT
  Sex: Male

DRUGS (14)
  1. SILDENAFIL. [Suspect]
     Active Substance: SILDENAFIL
     Indication: SHOCK
     Dosage: UNK
     Route: 065
  2. DOBUTAMINE [Suspect]
     Active Substance: DOBUTAMINE HYDROCHLORIDE
     Indication: HYPOTENSION
     Dosage: UNK
     Route: 065
  3. PROSTAGLANDIN E1 [Suspect]
     Active Substance: ALPROSTADIL
     Indication: SHOCK
     Dosage: INFUSION
     Route: 065
  4. EPOPROSTENOL. [Concomitant]
     Active Substance: EPOPROSTENOL
     Indication: CARDIAC FAILURE
     Dosage: DOSE ESCALATED UP TO 60 NG/KG/ MIN.
     Route: 065
  5. PROSTAGLANDIN E1 [Suspect]
     Active Substance: ALPROSTADIL
     Indication: PATENT DUCTUS ARTERIOSUS
  6. NOREPINEPHRINE. [Suspect]
     Active Substance: NOREPINEPHRINE
     Indication: NEWBORN PERSISTENT PULMONARY HYPERTENSION
     Dosage: 0.8 MICROGRAM/KILOGRAM,NOREPINEPHRINE (UP TO 0.8 MICROG/KG/ MIN)
     Route: 065
  7. TERLIPRESSIN [Suspect]
     Active Substance: TERLIPRESSIN
     Indication: NEWBORN PERSISTENT PULMONARY HYPERTENSION
     Dosage: A 5 MICROGRAM/KG BOLUS DOSE FOLLOWED BY 10 MICROGRAM/KG/H CONTINUOUS INFUSION.
     Route: 065
  8. EPOPROSTENOL. [Concomitant]
     Active Substance: EPOPROSTENOL
     Indication: SHOCK
     Dosage: CONTINUOUS EPOPROSTENOL INFUSION
     Route: 065
  9. EPINEPHRINE. [Suspect]
     Active Substance: EPINEPHRINE
     Indication: NEWBORN PERSISTENT PULMONARY HYPERTENSION
     Dosage: 0.8 MICROGRAM/KILOGRAM,EPINEPHRINE (UP TO 0.8 MICROG/KG/MIN)
     Route: 065
  10. BOSENTAN. [Suspect]
     Active Substance: BOSENTAN
     Indication: NEWBORN PERSISTENT PULMONARY HYPERTENSION
     Dosage: 2 MILLIGRAM/KILOGRAM, BID
     Route: 065
  11. HYDROCORTISONE. [Suspect]
     Active Substance: HYDROCORTISONE
     Indication: NEWBORN PERSISTENT PULMONARY HYPERTENSION
     Dosage: 1 MILLIGRAM/KILOGRAM, TID
     Route: 065
  12. SILDENAFIL. [Suspect]
     Active Substance: SILDENAFIL
     Indication: PATENT DUCTUS ARTERIOSUS
  13. DOPAMINE [Suspect]
     Active Substance: DOPAMINE HYDROCHLORIDE
     Indication: HYPOTENSION
     Dosage: UNK
     Route: 065
  14. TERLIPRESSIN [Suspect]
     Active Substance: TERLIPRESSIN
     Indication: SHOCK
     Dosage: 10 MICROGRAM/KG/H CONTINUOUS INFUSION AND SUBSEQUENTLY TERLIPRESSIN WAS TAPERED
     Route: 065

REACTIONS (3)
  - Treatment failure [Unknown]
  - Product use issue [Unknown]
  - Off label use [Unknown]
